FAERS Safety Report 7958798-1 (Version None)
Quarter: 2011Q4

REPORT INFORMATION
  Report Type: 
  Country: None (occurrence: None)
  Receive Date: 20111206
  Receipt Date: 20111201
  Transmission Date: 20120403
  Serious: Yes (Death)
  Sender: FDA-Public Use
  Company Number: US-AMGEN-USASP2011061656

PATIENT
  Sex: Male
  Weight: 64.4 kg

DRUGS (2)
  1. NPLATE [Suspect]
     Indication: IDIOPATHIC THROMBOCYTOPENIC PURPURA
     Dosage: 10 MUG/KG, UNK
     Dates: start: 20101111, end: 20110512
  2. NPLATE [Suspect]
     Indication: MYELODYSPLASTIC SYNDROME

REACTIONS (1)
  - MYELODYSPLASTIC SYNDROME [None]
